FAERS Safety Report 6257245-8 (Version None)
Quarter: 2009Q3

REPORT INFORMATION
  Report Type: 
  Country: None (occurrence: None)
  Receive Date: 20090706
  Receipt Date: 20090624
  Transmission Date: 20100115
  Serious: Yes (Other)
  Sender: FDA-Public Use
  Company Number: JP-PFIZER INC-2009234117

PATIENT
  Age: 60 Year

DRUGS (20)
  1. REVATIO [Suspect]
     Indication: PULMONARY HYPERTENSION
     Dosage: FREQUENCY: 2X/DAY,
     Route: 048
     Dates: start: 20090502, end: 20090617
  2. PARIET [Concomitant]
     Route: 048
  3. CEROCRAL [Concomitant]
     Route: 048
  4. ACTOS [Concomitant]
     Route: 048
  5. MEVALOTIN [Concomitant]
     Route: 048
  6. AMARYL [Concomitant]
     Route: 048
  7. SPIRIVA [Concomitant]
  8. SALMETEROL XINAFOATE [Concomitant]
  9. ADALAT [Concomitant]
     Route: 048
  10. WARFARIN [Concomitant]
     Route: 048
     Dates: end: 20090617
  11. ASPIRIN [Concomitant]
     Route: 048
     Dates: end: 20090617
  12. TRIHEXYPHENIDYL HCL [Concomitant]
     Route: 048
  13. BIPERIDEN HYDROCHLORIDE TAB [Concomitant]
  14. LIMAS [Concomitant]
     Route: 048
  15. BROMPERIDOL [Concomitant]
     Route: 048
  16. SILECE [Concomitant]
  17. RHYTHMY [Concomitant]
     Route: 048
  18. PROMETHAZINE HCL [Concomitant]
     Route: 048
  19. HIRNAMIN [Concomitant]
  20. FLUTICASONE PROPIONATE [Concomitant]

REACTIONS (1)
  - HAEMOPTYSIS [None]
